FAERS Safety Report 10049182 (Version 2)
Quarter: 2014Q2

REPORT INFORMATION
  Report Type: Report from Study
  Country: US (occurrence: US)
  Receive Date: 20140401
  Receipt Date: 20140407
  Transmission Date: 20141212
  Serious: Yes (Hospitalization, Other)
  Sender: FDA-Public Use
  Company Number: US-ROCHE-1370040

PATIENT
  Age: 67 Year
  Sex: Female
  Weight: 49.94 kg

DRUGS (12)
  1. AVASTIN [Suspect]
     Indication: NON-SMALL CELL LUNG CANCER
     Route: 042
  2. LEFLUNOMIDE [Concomitant]
     Route: 048
  3. FOLIC ACID [Concomitant]
     Route: 048
  4. OMEPRAZOLE [Concomitant]
     Dosage: FOR 7 DAYS
     Route: 048
  5. DEXAMETHASONE [Concomitant]
     Indication: CHEMOTHERAPY
     Dosage: EVERY AM AND PM
     Route: 048
  6. PREDNISONE [Concomitant]
     Dosage: 4 A DAY FOR 3 DAYS , THEN 10MG - 3 A DAY FOR 3 DAY
     Route: 065
  7. PERCOCET [Concomitant]
     Route: 065
  8. NYSTATIN [Concomitant]
     Route: 065
  9. K-Y JELLY [Concomitant]
     Dosage: IN NOSTRIL
     Route: 065
  10. ZOLPIDEM [Concomitant]
     Dosage: ONE AT BEDTIME
     Route: 065
  11. LUMIGAN [Concomitant]
     Dosage: 1 GTT RIGHT EYE AT BEDTIME
     Route: 065
  12. ECOTRIN [Concomitant]
     Route: 065

REACTIONS (3)
  - Brain neoplasm [Not Recovered/Not Resolved]
  - Protein urine present [Unknown]
  - Fatigue [Not Recovered/Not Resolved]
